FAERS Safety Report 23664236 (Version 1)
Quarter: 2024Q1

REPORT INFORMATION
  Report Type: Spontaneous
  Country: CA (occurrence: CA)
  Receive Date: 20240322
  Receipt Date: 20240322
  Transmission Date: 20240409
  Serious: Yes (Other)
  Sender: FDA-Public Use
  Company Number: CA-TEVA-VS-3172398

PATIENT
  Age: 43 Year
  Sex: Male

DRUGS (2)
  1. METHOTREXATE SODIUM [Suspect]
     Active Substance: METHOTREXATE SODIUM
     Indication: Granulomatosis with polyangiitis
     Route: 065
  2. PREDNISONE [Concomitant]
     Active Substance: PREDNISONE
     Dosage: DOSAGE FORM: NOT SPECIFIED
     Route: 065

REACTIONS (6)
  - Condition aggravated [Not Recovered/Not Resolved]
  - Deafness [Not Recovered/Not Resolved]
  - Eye disorder [Not Recovered/Not Resolved]
  - Inflammation [Not Recovered/Not Resolved]
  - Rash [Not Recovered/Not Resolved]
  - Off label use [Not Recovered/Not Resolved]
